FAERS Safety Report 5841121-6 (Version None)
Quarter: 2008Q3

REPORT INFORMATION
  Report Type: 
  Country: None (occurrence: None)
  Receive Date: 20080812
  Receipt Date: 20080731
  Transmission Date: 20090109
  Serious: Yes (Hospitalization)
  Sender: FDA-Public Use
  Company Number: US-JNJFOC-20080605673

PATIENT
  Sex: Male
  Weight: 86.18 kg

DRUGS (18)
  1. REMICADE [Suspect]
     Indication: CROHN'S DISEASE
     Dosage: TREATED FOR 3 YEARS.
     Route: 042
  2. ASPIRIN [Concomitant]
  3. PROTONIX [Concomitant]
  4. LOPRESSOR [Concomitant]
  5. LOTREL [Concomitant]
  6. VITAMIN B-12 [Concomitant]
  7. NYSTATIN [Concomitant]
  8. DITROPAN [Concomitant]
  9. MAGACE [Concomitant]
  10. NALOXONE [Concomitant]
  11. ACETAMINOPHEN [Concomitant]
  12. REMERON [Concomitant]
  13. IMODIUM [Concomitant]
  14. ZYPREXA [Concomitant]
  15. BENADRYL [Concomitant]
  16. PHENERGAN HCL [Concomitant]
  17. ZOFRAN [Concomitant]
  18. TOPICAL* PASTE* [Concomitant]

REACTIONS (4)
  - ENCEPHALOPATHY [None]
  - RENAL FAILURE [None]
  - RENAL FAILURE ACUTE [None]
  - URINARY TRACT INFECTION [None]
